FAERS Safety Report 9418839 (Version 1)
Quarter: 2013Q3

REPORT INFORMATION
  Report Type: Spontaneous
  Country: FR (occurrence: FR)
  Receive Date: 20130725
  Receipt Date: 20130725
  Transmission Date: 20140515
  Serious: Yes (Other)
  Sender: FDA-Public Use
  Company Number: FR-JNJFOC-20130710854

PATIENT
  Age: 64 Year
  Sex: Female

DRUGS (7)
  1. XARELTO [Suspect]
     Indication: CEREBROVASCULAR ACCIDENT PROPHYLAXIS
     Route: 048
     Dates: start: 20130322, end: 20130613
  2. XARELTO [Suspect]
     Indication: ATRIAL FIBRILLATION
     Route: 048
     Dates: start: 20130322, end: 20130613
  3. STAGID [Concomitant]
     Indication: DIABETES MELLITUS
     Route: 065
  4. CELIPROLOL [Concomitant]
     Route: 065
  5. RILMENIDINE [Concomitant]
     Route: 065
  6. AMIODARONE [Concomitant]
     Route: 065
  7. COAPROVEL [Concomitant]
     Route: 065

REACTIONS (1)
  - Renal failure [Recovered/Resolved]
